FAERS Safety Report 8599406-9 (Version None)
Quarter: 2012Q3

REPORT INFORMATION
  Report Type: 
  Country: None (occurrence: None)
  Receive Date: 20120808
  Receipt Date: 20120808
  Transmission Date: 20120928
  Serious: Yes (Other)
  Sender: FDA-Public Use
  Company Number: None

PATIENT
  Age: 59 Year
  Sex: Male
  Weight: 84 kg

DRUGS (9)
  1. LACTULOSE [Concomitant]
  2. PANTOPRAZOLE [Concomitant]
  3. QUETIAPINE [Suspect]
     Indication: ALCOHOLIC PSYCHOSIS
     Dosage: 25 MG / 50 MG QAM/QHS PO
     Route: 048
     Dates: start: 20111210, end: 20111210
  4. RIFAXIMIN [Concomitant]
  5. FOLIC ACID [Concomitant]
  6. MULTI-VITAMIN [Concomitant]
  7. DIVALPROEX SODIUM [Suspect]
     Indication: ALCOHOLIC PSYCHOSIS
     Dosage: 250 MG BID PO
     Route: 048
     Dates: start: 20111128, end: 20111211
  8. LORAZEPAM [Concomitant]
  9. FERROUS SULFATE TAB [Concomitant]

REACTIONS (7)
  - MUSCLE RIGIDITY [None]
  - RESPIRATORY ACIDOSIS [None]
  - DYSTONIA [None]
  - ACUTE RESPIRATORY FAILURE [None]
  - HYPOXIA [None]
  - OBSTRUCTIVE AIRWAYS DISORDER [None]
  - LETHARGY [None]
